FAERS Safety Report 23369172 (Version 1)
Quarter: 2024Q1

REPORT INFORMATION
  Report Type: Spontaneous
  Country: PT (occurrence: PT)
  Receive Date: 20240105
  Receipt Date: 20240105
  Transmission Date: 20240409
  Serious: Yes (Death, Other)
  Sender: FDA-Public Use
  Company Number: PT-JNJFOC-20240101291

PATIENT

DRUGS (1)
  1. IMBRUVICA [Suspect]
     Active Substance: IBRUTINIB
     Indication: Chronic lymphocytic leukaemia
     Route: 048

REACTIONS (7)
  - Adverse event [Fatal]
  - Infection [Unknown]
  - Fungal abscess central nervous system [Fatal]
  - Central nervous system haemorrhage [Fatal]
  - Arrhythmia [Fatal]
  - Cerebrovascular accident [Fatal]
  - Colitis [Fatal]
